FAERS Safety Report 17463803 (Version 1)
Quarter: 2020Q1

REPORT INFORMATION
  Report Type: Report from Study
  Country: ES (occurrence: ES)
  Receive Date: 20200226
  Receipt Date: 20200226
  Transmission Date: 20200409
  Serious: Yes (Life-Threatening, Hospitalization)
  Sender: FDA-Public Use
  Company Number: ES-MYLANLABS-2020M1020703

PATIENT
  Age: 63 Year
  Sex: Male

DRUGS (2)
  1. FENTANILO                          /00174601/ [Suspect]
     Active Substance: FENTANYL
     Indication: CELL DEATH
     Dosage: UNK (8 PARCHES DE 25 MCG)
     Route: 058
     Dates: start: 20180428, end: 20180428
  2. ALPRAZOLAM. [Suspect]
     Active Substance: ALPRAZOLAM
     Indication: CELL DEATH
     Dosage: UNK
     Route: 048
     Dates: start: 20180428, end: 20180428

REACTIONS (4)
  - Cyanosis [Recovering/Resolving]
  - Loss of consciousness [Recovering/Resolving]
  - Suicide attempt [Recovering/Resolving]
  - Cardiac arrest [Recovering/Resolving]

NARRATIVE: CASE EVENT DATE: 20180428
